FAERS Safety Report 20119737 (Version 5)
Quarter: 2022Q3

REPORT INFORMATION
  Report Type: Report from Study
  Country: CA (occurrence: CA)
  Receive Date: 20211126
  Receipt Date: 20220903
  Transmission Date: 20221027
  Serious: Yes (Hospitalization, Other)
  Sender: FDA-Public Use
  Company Number: CA-VER-202100303

PATIENT
  Age: 69 Year
  Sex: Male

DRUGS (3)
  1. TRIPTORELIN PAMOATE [Suspect]
     Active Substance: TRIPTORELIN PAMOATE
     Indication: Prostate cancer
     Dosage: 2) 11-NOV-2021 - 11-NOV-2021 (1 DAYS)?3) 11-FEB-2022 - 11-FEB-2022 (1 DAYS)?4) -MAY-2022 - -MAY-2022
     Route: 030
     Dates: start: 20210820
  2. ABIRATERONE [Concomitant]
     Active Substance: ABIRATERONE
     Indication: Product used for unknown indication
     Route: 065
  3. PREDNISONE [Concomitant]
     Active Substance: PREDNISONE
     Indication: Product used for unknown indication
     Dosage: TWICE DAILY
     Route: 065

REACTIONS (4)
  - Injection site haemorrhage [Unknown]
  - Gout [Recovering/Resolving]
  - Weight increased [Unknown]
  - Delirium [Recovering/Resolving]

NARRATIVE: CASE EVENT DATE: 20211031
